FAERS Safety Report 9728689 (Version 1)
Quarter: 2013Q4

REPORT INFORMATION
  Report Type: Spontaneous
  Country: US (occurrence: US)
  Receive Date: 20131204
  Receipt Date: 20131204
  Transmission Date: 20140711
  Serious: No
  Sender: FDA-Public Use
  Company Number: US-PFIZER INC-2013342083

PATIENT
  Sex: Male

DRUGS (3)
  1. PRISTIQ [Suspect]
     Dosage: UNK
  2. EQUATE NITETIME COLD AND FLU [Interacting]
     Indication: INFLUENZA
     Dosage: UNK
  3. EQUATE DAY TIME COLD AND FLU MULTI SYMPTOM RELIEF [Interacting]
     Indication: INFLUENZA
     Dosage: UNK

REACTIONS (3)
  - Drug interaction [Unknown]
  - Anger [Unknown]
  - Hostility [Unknown]
